FAERS Safety Report 6805406-9 (Version None)
Quarter: 2010Q2

REPORT INFORMATION
  Report Type: 
  Country: None (occurrence: None)
  Receive Date: 20100628
  Receipt Date: 20071115
  Transmission Date: 20101027
  Serious: No
  Sender: FDA-Public Use
  Company Number: US-PFIZER INC-2007087904

PATIENT
  Sex: Male
  Weight: 100 kg

DRUGS (4)
  1. XALATAN [Suspect]
     Indication: GLAUCOMA
     Dates: start: 20071005
  2. TOPROL-XL [Concomitant]
  3. LISINOPRIL [Concomitant]
  4. VITAMINS [Concomitant]

REACTIONS (6)
  - DRY EYE [None]
  - EYE INJURY [None]
  - EYE IRRITATION [None]
  - EYELID FUNCTION DISORDER [None]
  - INAPPROPRIATE SCHEDULE OF DRUG ADMINISTRATION [None]
  - INCORRECT STORAGE OF DRUG [None]
